FAERS Safety Report 8499566-4 (Version None)
Quarter: 2012Q3

REPORT INFORMATION
  Report Type: 
  Country: None (occurrence: None)
  Receive Date: 20120710
  Receipt Date: 20120629
  Transmission Date: 20120928
  Serious: Yes (Other)
  Sender: FDA-Public Use
  Company Number: SE-BRISTOL-MYERS SQUIBB COMPANY-16730152

PATIENT

DRUGS (1)
  1. ORENCIA [Suspect]

REACTIONS (1)
  - PERICARDITIS [None]
